FAERS Safety Report 22374900 (Version 3)
Quarter: 2023Q2

REPORT INFORMATION
  Report Type: Report from Study
  Country: US (occurrence: US)
  Receive Date: 20230527
  Receipt Date: 20230605
  Transmission Date: 20230721
  Serious: No
  Sender: FDA-Public Use
  Company Number: US-002147023-NVSC2023US120866

PATIENT
  Age: 77 Year
  Sex: Female

DRUGS (1)
  1. XIIDRA [Suspect]
     Active Substance: LIFITEGRAST
     Indication: Product used for unknown indication
     Dosage: 5 ML, QD
     Route: 047
     Dates: start: 20221201

REACTIONS (3)
  - Dysgeusia [Unknown]
  - Hypophagia [Unknown]
  - Throat irritation [Unknown]

NARRATIVE: CASE EVENT DATE: 20230204
